FAERS Safety Report 13128806 (Version 1)
Quarter: 2017Q1

REPORT INFORMATION
  Report Type: Report from Study
  Country: CA (occurrence: CA)
  Receive Date: 20170119
  Receipt Date: 20170119
  Transmission Date: 20170428
  Serious: Yes (Other)
  Sender: FDA-Public Use
  Company Number: CA-AMGEN-CANSP2014004236

PATIENT
  Age: 40 Year
  Sex: Female

DRUGS (3)
  1. ENBREL [Suspect]
     Active Substance: ETANERCEPT
     Indication: RHEUMATOID ARTHRITIS
     Dosage: 50 MG, UNK
     Route: 065
     Dates: start: 20130816
  2. PLAQUENIL [Concomitant]
     Active Substance: HYDROXYCHLOROQUINE SULFATE
     Dosage: UNK
  3. PREDNISONE. [Concomitant]
     Active Substance: PREDNISONE
     Dosage: UNK

REACTIONS (13)
  - Hip arthroplasty [Unknown]
  - Rash papular [Not Recovered/Not Resolved]
  - Fall [Unknown]
  - Rash pruritic [Not Recovered/Not Resolved]
  - Nausea [Unknown]
  - Mydriasis [Not Recovered/Not Resolved]
  - Hallucination [Unknown]
  - Head injury [Unknown]
  - Syncope [Unknown]
  - Vitamin D deficiency [Unknown]
  - Decreased appetite [Unknown]
  - Wrist fracture [Unknown]
  - Contusion [Unknown]

NARRATIVE: CASE EVENT DATE: 20160921
